FAERS Safety Report 5629985-2 (Version None)
Quarter: 2008Q1

REPORT INFORMATION
  Report Type: 
  Country: None (occurrence: None)
  Receive Date: 20080213
  Receipt Date: 20071121
  Transmission Date: 20080703
  Serious: Yes (Death, Hospitalization)
  Sender: FDA-Public Use
  Company Number: 2007EU002652

PATIENT
  Age: 42 Year
  Sex: Female

DRUGS (4)
  1. PROGRAF [Suspect]
     Indication: IMMUNOSUPPRESSION
  2. SIMULECT [Suspect]
     Indication: IMMUNOSUPPRESSION
  3. MYCOPHENOLATE MOFETIL [Suspect]
     Indication: IMMUNOSUPPRESSION
  4. PREDNISOLONE ACETATE [Suspect]
     Indication: IMMUNOSUPPRESSION

REACTIONS (3)
  - CLOSTRIDIAL INFECTION [None]
  - CYTOMEGALOVIRUS INFECTION [None]
  - MULTI-ORGAN FAILURE [None]
